FAERS Safety Report 6576669-2 (Version None)
Quarter: 2010Q1

REPORT INFORMATION
  Report Type: 
  Country: None (occurrence: None)
  Receive Date: 20100210
  Receipt Date: 20100201
  Transmission Date: 20100710
  Serious: Yes (Disabling)
  Sender: FDA-Public Use
  Company Number: FR-ASTRAZENECA-2010SE05286

PATIENT
  Age: 67 Year
  Sex: Male

DRUGS (4)
  1. XYLOCAINE [Suspect]
     Indication: ANAESTHESIA
     Route: 008
     Dates: start: 20020312
  2. IOPAMIDOL [Suspect]
     Indication: ANAESTHESIA
     Route: 008
     Dates: start: 20020312
  3. HYDROCORTANCYL [Suspect]
     Indication: ANAESTHESIA
     Route: 008
     Dates: start: 20020312
  4. EURELIX [Concomitant]
     Indication: HYPERTENSION
     Route: 048

REACTIONS (1)
  - PARAPLEGIA [None]
